FAERS Safety Report 4993866-8 (Version None)
Quarter: 2006Q2

REPORT INFORMATION
  Report Type: 
  Country: None (occurrence: None)
  Receive Date: 20060505
  Receipt Date: 20050607
  Transmission Date: 20061013
  Serious: Yes (Hospitalization, Disabling, Other)
  Sender: FDA-Public Use
  Company Number: US-MERCK-0506USA01091

PATIENT
  Age: 56 Year
  Sex: Male
  Weight: 81 kg

DRUGS (4)
  1. VIOXX [Suspect]
     Indication: BACK PAIN
     Route: 048
     Dates: start: 19990501, end: 20040901
  2. VIOXX [Suspect]
     Indication: NECK PAIN
     Route: 048
     Dates: start: 19990501, end: 20040901
  3. CELEXA [Concomitant]
     Route: 065
  4. LIPITOR [Concomitant]
     Route: 065

REACTIONS (24)
  - AORTIC ARTERIOSCLEROSIS [None]
  - BACK INJURY [None]
  - BLOOD PRESSURE INCREASED [None]
  - BRONCHITIS [None]
  - CARPAL TUNNEL SYNDROME [None]
  - CEREBROVASCULAR ACCIDENT [None]
  - COMPLEX REGIONAL PAIN SYNDROME [None]
  - CONVULSION [None]
  - EYELID PTOSIS [None]
  - FALL [None]
  - GOITRE [None]
  - GRAND MAL CONVULSION [None]
  - HYPERTENSION [None]
  - INJURY [None]
  - JOINT INJURY [None]
  - MEMORY IMPAIRMENT [None]
  - MITRAL VALVE INCOMPETENCE [None]
  - NECK INJURY [None]
  - PAIN IN EXTREMITY [None]
  - PARTIAL SEIZURES [None]
  - PULMONARY EMBOLISM [None]
  - SINUSITIS [None]
  - THROMBOPHLEBITIS [None]
  - TRANSIENT ISCHAEMIC ATTACK [None]
